FAERS Safety Report 21780054 (Version 1)
Quarter: 2022Q4

REPORT INFORMATION
  Report Type: Spontaneous
  Country: None (occurrence: CN)
  Receive Date: 20221226
  Receipt Date: 20221226
  Transmission Date: 20230112
  Serious: Yes (Other)
  Sender: FDA-Public Use
  Company Number: CN-Jiangsu Hengrui Medicine Co., Ltd.-2136179

PATIENT
  Age: 55 Year
  Sex: Male

DRUGS (2)
  1. IRINOTECAN HYDROCHLORIDE [Suspect]
     Active Substance: IRINOTECAN HYDROCHLORIDE
     Indication: Small cell lung cancer
     Dates: start: 20210714
  2. CISPLATIN [Concomitant]
     Active Substance: CISPLATIN

REACTIONS (5)
  - Myelosuppression [Unknown]
  - Haematochezia [Unknown]
  - Diarrhoea [Unknown]
  - Anal incontinence [Unknown]
  - Product use in unapproved indication [Unknown]

NARRATIVE: CASE EVENT DATE: 20210717
